FAERS Safety Report 9610911 (Version 1)
Quarter: 2013Q4

REPORT INFORMATION
  Report Type: Spontaneous
  Country: DE (occurrence: DE)
  Receive Date: 20131009
  Receipt Date: 20131009
  Transmission Date: 20140711
  Serious: Yes (Hospitalization)
  Sender: FDA-Public Use
  Company Number: DE-ELI_LILLY_AND_COMPANY-DE201310002298

PATIENT
  Age: 68 Year
  Sex: Female

DRUGS (2)
  1. CIALIS [Suspect]
     Indication: PULMONARY HYPERTENSION
     Dosage: 20 MG, UNKNOWN
     Route: 048
  2. ADCIRCA [Concomitant]
     Indication: PULMONARY HYPERTENSION

REACTIONS (3)
  - Cyanosis [Recovered/Resolved]
  - Malaise [Recovered/Resolved]
  - Off label use [Recovered/Resolved]
